FAERS Safety Report 18677046 (Version 2)
Quarter: 2021Q1

REPORT INFORMATION
  Report Type: Report from Study
  Country: US (occurrence: US)
  Receive Date: 20201229
  Receipt Date: 20210305
  Transmission Date: 20210419
  Serious: Yes (Life-Threatening, Hospitalization, Other)
  Sender: FDA-Public Use
  Company Number: US-PFIZER INC-2020511175

PATIENT
  Age: 13 Year
  Sex: Female
  Weight: 60.8 kg

DRUGS (25)
  1. CYTARABINE. [Suspect]
     Active Substance: CYTARABINE
     Dosage: UNK
     Dates: start: 20201005
  2. ROBAXIN [Suspect]
     Active Substance: METHOCARBAMOL
     Dosage: UNK
     Dates: start: 20200923
  3. CYTARABINE. [Suspect]
     Active Substance: CYTARABINE
     Indication: B-CELL TYPE ACUTE LEUKAEMIA
     Dosage: 116 MG, QD (DAYS 1?4, 8?11, 29?32, AND 36?39)
     Route: 042
     Dates: start: 20200701, end: 20200824
  4. CYCLOPHOSPHAMIDE. [Suspect]
     Active Substance: CYCLOPHOSPHAMIDE
     Indication: B-CELL TYPE ACUTE LEUKAEMIA
     Dosage: 1560 MG, ONCE (DAYS 1 AND 29)
     Route: 042
     Dates: start: 20200701, end: 20200814
  5. DIPHENHYDRAMINE. [Concomitant]
     Active Substance: DIPHENHYDRAMINE
     Dosage: UNK
     Dates: start: 20200602
  6. LORAZEPAM. [Concomitant]
     Active Substance: LORAZEPAM
     Dosage: UNK
     Dates: start: 20200602
  7. HYDROMORPHONE [Concomitant]
     Active Substance: HYDROMORPHONE
     Dosage: UNK
     Dates: start: 20200910
  8. ACYCLOVIR [ACICLOVIR] [Concomitant]
     Active Substance: ACYCLOVIR
     Dosage: UNK
     Dates: start: 20200908
  9. SULFAMETHOXAZOLE/TRIMETHOPRIM [Concomitant]
     Active Substance: SULFAMETHOXAZOLE\TRIMETHOPRIM
     Dosage: UNK
     Dates: start: 20200521
  10. NALOXONE [Concomitant]
     Active Substance: NALOXONE
     Dosage: UNK
     Dates: start: 20200905
  11. PHENAZOPYRIDINE. [Concomitant]
     Active Substance: PHENAZOPYRIDINE
     Dosage: UNK
     Dates: start: 20200904
  12. METHOTREXATE SODIUM. [Suspect]
     Active Substance: METHOTREXATE SODIUM
     Indication: B-CELL TYPE ACUTE LEUKAEMIA
     Dosage: 15 MG, ONCE (DAYS 1, 8, 15, AND 22)
     Route: 037
     Dates: start: 20200701, end: 20200724
  13. PEGASPARGASE [Suspect]
     Active Substance: PEGASPARGASE
     Indication: B-CELL TYPE ACUTE LEUKAEMIA
     Dosage: 3900 INTERNATIONAL UNIT, ONCE (DAYS 15 AND 43)
     Route: 042
     Dates: start: 20200717
  14. COMPAZINE [Suspect]
     Active Substance: PROCHLORPERAZINE MALEATE
     Dosage: UNK
     Dates: start: 20200923
  15. VINCRISTINE SULFATE. [Suspect]
     Active Substance: VINCRISTINE SULFATE
     Indication: B-CELL TYPE ACUTE LEUKAEMIA
     Dosage: 2 MG,  ONCE (DAYS 15, 22, AND 43)
     Route: 042
     Dates: start: 20200717
  16. ONDANSETRON [Concomitant]
     Active Substance: ONDANSETRON
     Dosage: UNK
     Dates: start: 20200518
  17. METOCLOPRAMIDE. [Concomitant]
     Active Substance: METOCLOPRAMIDE
     Dosage: UNK
     Dates: start: 20200602
  18. VINCRISTINE SULFATE. [Suspect]
     Active Substance: VINCRISTINE SULFATE
     Dosage: UNK
     Dates: start: 20201005
  19. INCB018424 [Suspect]
     Active Substance: RUXOLITINIB
     Indication: B-CELL TYPE ACUTE LEUKAEMIA
     Dosage: 80 MG, BID
     Route: 048
     Dates: start: 20200701, end: 20200828
  20. MERCAPTOPURINE. [Suspect]
     Active Substance: MERCAPTOPURINE
     Indication: B-CELL TYPE ACUTE LEUKAEMIA
     Dosage: 100 MG, QD (MONDAY?FRIDAY) /75 MG, QD (SATURDAY?SUNDAY)
     Route: 048
     Dates: start: 20200701, end: 20200827
  21. VORICONAZOLE. [Concomitant]
     Active Substance: VORICONAZOLE
     Dosage: UNK
     Dates: start: 20200911
  22. OXYCODONE [Concomitant]
     Active Substance: OXYCODONE
     Dosage: UNK
     Dates: start: 20200518
  23. OXYBUTYNIN. [Concomitant]
     Active Substance: OXYBUTYNIN CHLORIDE
     Dosage: UNK
     Dates: start: 20200904
  24. POSACONAZOLE [Concomitant]
     Active Substance: POSACONAZOLE
     Dosage: UNK
     Dates: start: 20200914
  25. PENTAMIDINE [Concomitant]
     Active Substance: PENTAMIDINE
     Dosage: UNK
     Dates: start: 20200913

REACTIONS (12)
  - Tremor [Recovering/Resolving]
  - Oral disorder [Recovered/Resolved with Sequelae]
  - Gait disturbance [Recovering/Resolving]
  - Dehydration [Not Recovered/Not Resolved]
  - Nausea [Recovering/Resolving]
  - Constipation [Recovered/Resolved]
  - Febrile neutropenia [Recovered/Resolved]
  - Hypokalaemia [Recovered/Resolved]
  - Dehydration [Not Recovered/Not Resolved]
  - Encephalopathy [Recovered/Resolved]
  - Somnolence [Not Recovered/Not Resolved]
  - Urinary tract infection [Not Recovered/Not Resolved]

NARRATIVE: CASE EVENT DATE: 20200902
